FAERS Safety Report 25065429 (Version 1)
Quarter: 2025Q1

REPORT INFORMATION
  Report Type: Report from Study
  Country: US (occurrence: US)
  Receive Date: 20250311
  Receipt Date: 20250311
  Transmission Date: 20250409
  Serious: Yes (Hospitalization)
  Sender: UCB
  Company Number: US-UCBSA-2025013748

PATIENT
  Sex: Female

DRUGS (1)
  1. CERTOLIZUMAB PEGOL [Suspect]
     Active Substance: CERTOLIZUMAB PEGOL
     Indication: Product used for unknown indication
     Dosage: 400 MILLIGRAM, EV 4 WEEKS
     Dates: start: 2024

REACTIONS (4)
  - Infection [Not Recovered/Not Resolved]
  - Pain [Not Recovered/Not Resolved]
  - Therapy interrupted [Unknown]
  - Inability to afford medication [Unknown]
